FAERS Safety Report 4889903-1 (Version None)
Quarter: 2006Q1

REPORT INFORMATION
  Report Type: 
  Country: None (occurrence: None)
  Receive Date: 20060124
  Receipt Date: 20051003
  Transmission Date: 20060701
  Serious: Yes (Death, Hospitalization)
  Sender: FDA-Public Use
  Company Number: US-MERCK-0510USA02618

PATIENT
  Age: 65 Year
  Sex: Female
  Weight: 77 kg

DRUGS (10)
  1. VIOXX [Suspect]
     Indication: ARTHRITIS
     Route: 048
     Dates: start: 19990907, end: 20010608
  2. VIOXX [Suspect]
     Route: 048
  3. IMDUR [Concomitant]
     Route: 048
  4. HUMULIN 70/30 [Concomitant]
     Route: 058
  5. LASIX [Concomitant]
     Route: 048
  6. GLUCOPHAGE [Concomitant]
     Route: 048
  7. PRILOSEC [Concomitant]
     Route: 048
  8. TOPROL-XL [Concomitant]
     Route: 048
  9. NORVASC [Concomitant]
     Route: 048
  10. ASPIRIN [Concomitant]
     Route: 065

REACTIONS (17)
  - ABDOMINAL DISTENSION [None]
  - ABDOMINAL PAIN UPPER [None]
  - ANGINA UNSTABLE [None]
  - CHEST PAIN [None]
  - CHRONIC OBSTRUCTIVE PULMONARY DISEASE [None]
  - CORONARY ARTERY DISEASE [None]
  - COUGH [None]
  - DEATH [None]
  - DIABETES MELLITUS [None]
  - DUODENAL ULCER [None]
  - DYSPNOEA [None]
  - HELICOBACTER GASTRITIS [None]
  - MYOCARDIAL INFARCTION [None]
  - NAUSEA [None]
  - OEDEMA PERIPHERAL [None]
  - RESPIRATORY TRACT INFECTION [None]
  - VOMITING [None]
